FAERS Safety Report 5840668-6 (Version None)
Quarter: 2008Q3

REPORT INFORMATION
  Report Type: 
  Country: None (occurrence: None)
  Receive Date: 20080811
  Receipt Date: 20080804
  Transmission Date: 20090109
  Serious: Yes (Other)
  Sender: FDA-Public Use
  Company Number: PHHY2008DE16924

PATIENT

DRUGS (2)
  1. RASILEZ [Suspect]
  2. BETA BLOCKING AGENTS [Suspect]

REACTIONS (1)
  - PSORIASIS [None]
